FAERS Safety Report 15100585 (Version 1)
Quarter: 2018Q3

REPORT INFORMATION
  Report Type: Spontaneous
  Country: US (occurrence: US)
  Receive Date: 20180703
  Receipt Date: 20180703
  Transmission Date: 20181010
  Serious: Yes (Death, Hospitalization, Other)
  Sender: FDA-Public Use
  Company Number: US-BRISTOL-MYERS SQUIBB COMPANY-BMS-2018-057931

PATIENT
  Sex: Female

DRUGS (3)
  1. COUMADINE [Suspect]
     Active Substance: WARFARIN SODIUM
     Indication: HEART VALVE REPLACEMENT
     Route: 065
  2. COUMADINE [Suspect]
     Active Substance: WARFARIN SODIUM
     Indication: CARDIAC FAILURE CONGESTIVE
     Dosage: UNAVAILABLE
     Route: 065
  3. COUMADINE [Suspect]
     Active Substance: WARFARIN SODIUM
     Indication: RHEUMATIC HEART DISEASE
     Route: 065

REACTIONS (9)
  - Cardiac disorder [Unknown]
  - Contusion [Unknown]
  - Fatigue [Unknown]
  - Thinking abnormal [Unknown]
  - Death [Fatal]
  - Ocular hyperaemia [Unknown]
  - Gout [Unknown]
  - Drug interaction [Unknown]
  - Confusional state [Unknown]
